FAERS Safety Report 4519295-9 (Version None)
Quarter: 2004Q4

REPORT INFORMATION
  Report Type: 
  Country: None (occurrence: None)
  Receive Date: 20041206
  Receipt Date: 20041116
  Transmission Date: 20050328
  Serious: Yes (Hospitalization, Other)
  Sender: FDA-Public Use
  Company Number: US-GLAXOSMITHKLINE-A0534129A

PATIENT
  Age: 73 Year
  Sex: Female
  Weight: 71 kg

DRUGS (5)
  1. VALTREX [Suspect]
     Dosage: 1G THREE TIMES PER DAY
     Route: 048
  2. AROMASIN [Concomitant]
     Indication: BREAST CANCER
     Dosage: 25MG PER DAY
     Route: 048
  3. DIOVAN [Concomitant]
     Indication: HYPERTENSION
     Dosage: 240MG PER DAY
     Route: 048
  4. ATIVAN [Concomitant]
     Indication: SLEEP DISORDER
     Dosage: 1MG AT NIGHT
     Route: 048
  5. PRILOSEC [Concomitant]
     Dosage: 20MG AS REQUIRED
     Route: 048

REACTIONS (1)
  - INAPPROPRIATE ANTIDIURETIC HORMONE SECRETION [None]
